FAERS Safety Report 12554212 (Version 1)
Quarter: 2016Q3

REPORT INFORMATION
  Report Type: Spontaneous
  Country: DE (occurrence: DE)
  Receive Date: 20160713
  Receipt Date: 20160713
  Transmission Date: 20161109
  Serious: Yes (Hospitalization)
  Sender: FDA-Public Use
  Company Number: DE-PFIZER INC-2016337146

PATIENT
  Age: 81 Year
  Sex: Female

DRUGS (10)
  1. AXURA [Interacting]
     Active Substance: MEMANTINE HYDROCHLORIDE
     Dosage: 10 MG, DAILY
     Dates: start: 2014
  2. TOREM [Concomitant]
     Active Substance: TORSEMIDE
     Dosage: 5 MG, DAILY
     Dates: start: 2012
  3. ELONTRIL [Interacting]
     Active Substance: BUPROPION HYDROCHLORIDE
     Dosage: 300 MG, DAILY
     Dates: start: 201503
  4. REMERGIL [Interacting]
     Active Substance: MIRTAZAPINE
     Dosage: 15 MG, DAILY
     Dates: start: 2014
  5. L-THYROXIN [Concomitant]
     Active Substance: LEVOTHYROXINE SODIUM
     Dosage: 125 UG, DAILY
     Dates: start: 2010
  6. VENLAFAXINE HCL [Suspect]
     Active Substance: VENLAFAXINE HYDROCHLORIDE
     Dosage: 150 MG, DAILY
     Dates: start: 2014
  7. PRAVASTATIN. [Concomitant]
     Active Substance: PRAVASTATIN
     Dosage: 20 MG, DAILY
     Dates: start: 2010
  8. JANUVIA [Concomitant]
     Active Substance: SITAGLIPTIN PHOSPHATE
     Dosage: 100 MG, DAILY
     Dates: start: 2014
  9. METFORMIN [Concomitant]
     Active Substance: METFORMIN HYDROCHLORIDE
     Dosage: 2000 MG, DAILY
     Dates: start: 2013
  10. ASPIRIN. [Concomitant]
     Active Substance: ASPIRIN
     Dosage: 100 MG, DAILY
     Dates: start: 2012

REACTIONS (4)
  - Drug interaction [Recovered/Resolved]
  - Hyperhidrosis [Recovered/Resolved]
  - Tremor [Recovered/Resolved]
  - Delirium [Recovered/Resolved]

NARRATIVE: CASE EVENT DATE: 20150330
